FAERS Safety Report 14137606 (Version 1)
Quarter: 2017Q4

REPORT INFORMATION
  Report Type: Spontaneous
  Country: GB (occurrence: GB)
  Receive Date: 20171027
  Receipt Date: 20171027
  Transmission Date: 20180321
  Serious: Yes (Death, Other)
  Sender: FDA-Public Use
  Company Number: GB-TEVA-818849ACC

PATIENT
  Age: 75 Year
  Sex: Male
  Weight: 52 kg

DRUGS (17)
  1. CARBOCISTEINE [Concomitant]
     Active Substance: CARBOCYSTEINE
  2. MEROPENEM. [Concomitant]
     Active Substance: MEROPENEM
  3. SODIUM CHLORIDE. [Concomitant]
     Active Substance: SODIUM CHLORIDE
  4. ALENDRONIC ACID [Concomitant]
     Active Substance: ALENDRONIC ACID
  5. MOVICOL [Concomitant]
     Active Substance: POLYETHYLENE GLYCOL 3350\POTASSIUM CHLORIDE\SODIUM BICARBONATE\SODIUM CHLORIDE
  6. AMOXICILLIN. [Concomitant]
     Active Substance: AMOXICILLIN
  7. ASPIRIN. [Concomitant]
     Active Substance: ASPIRIN
     Dosage: POWDER
  8. SENNA [Concomitant]
     Active Substance: SENNA LEAF\SENNOSIDES\SENNOSIDES A AND B
  9. METHYLPREDNISOLONE. [Concomitant]
     Active Substance: METHYLPREDNISOLONE
  10. COCODAMOL [Concomitant]
     Active Substance: ACETAMINOPHEN\CODEINE PHOSPHATE
  11. OMEPRAZOLE. [Concomitant]
     Active Substance: OMEPRAZOLE
  12. SALBUTAMOL [Concomitant]
     Active Substance: ALBUTEROL
  13. ADCAL-D3 [Concomitant]
     Active Substance: CALCIUM CARBONATE\CHOLECALCIFEROL
  14. PREDNISOLONE. [Concomitant]
     Active Substance: PREDNISOLONE
  15. RANITIDINE. [Concomitant]
     Active Substance: RANITIDINE
  16. DUORESP SPIROMAX [Concomitant]
     Active Substance: BUDESONIDE\FORMOTEROL
     Dosage: 160/4.5
  17. IPRATROPIUM [Suspect]
     Active Substance: IPRATROPIUM
     Indication: CHRONIC OBSTRUCTIVE PULMONARY DISEASE
     Dosage: 1000 MILLIGRAM DAILY; VIA NEBULISER
     Route: 055
     Dates: start: 201704, end: 20170930

REACTIONS (6)
  - Blindness transient [Recovered/Resolved]
  - Hallucination [Unknown]
  - Visual impairment [Unknown]
  - Dysphagia [Fatal]
  - Pneumonia [Unknown]
  - Aspiration [Unknown]

NARRATIVE: CASE EVENT DATE: 201705
